FAERS Safety Report 11660612 (Version 2)
Quarter: 2015Q4

REPORT INFORMATION
  Report Type: Spontaneous
  Country: SV (occurrence: GB)
  Receive Date: 20151026
  Receipt Date: 20151103
  Transmission Date: 20160304
  Serious: Yes (Hospitalization, Other)
  Sender: FDA-Public Use
  Company Number: SV-GLAXOSMITHKLINE-GB2015GSK150769

PATIENT
  Sex: Male

DRUGS (3)
  1. NIQUITIN [Suspect]
     Active Substance: NICOTINE
     Indication: SMOKING CESSATION THERAPY
     Dosage: 21 MG, UNK
  2. LITHIUM. [Suspect]
     Active Substance: LITHIUM
     Indication: PRODUCT USED FOR UNKNOWN INDICATION
     Dosage: UNK
  3. NICOTINE SPRAY [Concomitant]
     Active Substance: NICOTINE
     Indication: SMOKING CESSATION THERAPY
     Dosage: UNK

REACTIONS (6)
  - Dependence [Unknown]
  - Schizophrenia [Unknown]
  - Headache [Unknown]
  - Accidental exposure to product [Unknown]
  - Drug ineffective [Unknown]
  - Migraine [Unknown]
